FAERS Safety Report 6401980-5 (Version None)
Quarter: 2009Q4

REPORT INFORMATION
  Report Type: 
  Country: None (occurrence: None)
  Receive Date: 20091015
  Receipt Date: 20091009
  Transmission Date: 20100525
  Serious: Yes (Disabling)
  Sender: FDA-Public Use
  Company Number: B0597811A

PATIENT
  Sex: Male

DRUGS (7)
  1. EPZICOM [Suspect]
     Indication: HIV INFECTION
     Route: 048
     Dates: start: 20080724, end: 20090630
  2. COMBIVIR [Concomitant]
     Indication: HIV INFECTION
     Dosage: 1TAB TWICE PER DAY
     Route: 048
     Dates: start: 20060324, end: 20080724
  3. COMBIVIR [Concomitant]
     Dosage: 1TAB TWICE PER DAY
     Route: 048
     Dates: start: 20090701
  4. VIRAMUNE [Concomitant]
     Indication: HIV INFECTION
     Dosage: 200MG TWICE PER DAY
     Route: 048
     Dates: start: 20060324
  5. ALINAMIN-F [Concomitant]
     Indication: HIV INFECTION
     Dosage: 4 PER DAY
     Route: 048
  6. AMLODIPINE [Concomitant]
     Indication: HIV INFECTION
     Route: 048
     Dates: start: 20071112
  7. INTERFERON [Concomitant]
     Dates: start: 20080402, end: 20080730

REACTIONS (2)
  - CHEST PAIN [None]
  - COUGH [None]
